FAERS Safety Report 10372332 (Version 2)
Quarter: 2014Q4

REPORT INFORMATION
  Report Type: Spontaneous
  Country: US (occurrence: US)
  Receive Date: 20140808
  Receipt Date: 20141205
  Transmission Date: 20150528
  Serious: No
  Sender: FDA-Public Use
  Company Number: US-BRISTOL-MYERS SQUIBB COMPANY-20926812

PATIENT
  Age: 44 Year
  Sex: Female

DRUGS (2)
  1. ALPRAZOLAM. [Concomitant]
     Active Substance: ALPRAZOLAM
     Indication: ANXIETY
  2. SPRYCEL [Suspect]
     Active Substance: DASATINIB
     Indication: CHRONIC MYELOID LEUKAEMIA
     Dosage: CAPS?100MG TABLET
     Route: 048
     Dates: start: 20140105

REACTIONS (4)
  - Vulvovaginal discomfort [Unknown]
  - Headache [Unknown]
  - Abdominal discomfort [Unknown]
  - Hot flush [Unknown]

NARRATIVE: CASE EVENT DATE: 20140530
